FAERS Safety Report 11076231 (Version 2)
Quarter: 2015Q3

REPORT INFORMATION
  Report Type: Spontaneous
  Country: US (occurrence: US)
  Receive Date: 20150429
  Receipt Date: 20150922
  Transmission Date: 20151125
  Serious: No
  Sender: FDA-Public Use
  Company Number: US-PFIZER INC-2015130229

PATIENT
  Sex: Female
  Weight: 87.98 kg

DRUGS (5)
  1. PLETAL [Suspect]
     Active Substance: CILOSTAZOL
     Dosage: UNK
  2. NAPROSYN [Suspect]
     Active Substance: NAPROXEN
     Dosage: UNK
  3. CARDURA [Suspect]
     Active Substance: DOXAZOSIN MESYLATE
     Dosage: UNK
  4. DIOVAN [Suspect]
     Active Substance: VALSARTAN
     Dosage: UNK
  5. NORVASC [Suspect]
     Active Substance: AMLODIPINE BESYLATE
     Dosage: UNK

REACTIONS (1)
  - Drug hypersensitivity [Unknown]
